FAERS Safety Report 9820103 (Version 1)
Quarter: 2013Q4

REPORT INFORMATION
  Report Type: Spontaneous
  Country: US (occurrence: None)
  Receive Date: 20131223
  Receipt Date: 20131223
  Transmission Date: 20140711
  Serious: Yes (Other)
  Sender: FDA-Public Use
  Company Number: 221407

PATIENT
  Age: 56 Year
  Sex: Female

DRUGS (3)
  1. PICATO GEL [Suspect]
     Indication: ACTINIC KERATOSIS
     Dosage: (1 IN 1 D), TOPICAL
     Route: 061
     Dates: start: 20130424, end: 20130424
  2. ASA (ACETYLSALICYLIC ACID) [Concomitant]
  3. CELEBREX (CELECOXIB) [Concomitant]

REACTIONS (6)
  - Application site erythema [None]
  - Application site swelling [None]
  - Application site paraesthesia [None]
  - Application site pain [None]
  - Incorrect dose administered [None]
  - Incorrect drug administration duration [None]
